FAERS Safety Report 18494356 (Version 1)
Quarter: 2020Q4

REPORT INFORMATION
  Report Type: Spontaneous
  Country: US (occurrence: US)
  Receive Date: 20201112
  Receipt Date: 20201112
  Transmission Date: 20210114
  Serious: Yes (Death, Life-Threatening, Other)
  Sender: FDA-Public Use
  Company Number: US-SUN PHARMACEUTICAL INDUSTRIES LTD-2020R1-267466

PATIENT
  Age: 38 Year
  Sex: Male

DRUGS (4)
  1. PREDNISONE. [Suspect]
     Active Substance: PREDNISONE
     Indication: IMMUNOSUPPRESSION
     Dosage: UNK
     Route: 065
  2. TACROLIMUS. [Suspect]
     Active Substance: TACROLIMUS
     Indication: IMMUNOSUPPRESSION
     Dosage: UNK
     Route: 065
  3. ALEMTUZUMAB [Suspect]
     Active Substance: ALEMTUZUMAB
     Indication: IMMUNOSUPPRESSION
     Dosage: UNK
     Route: 065
  4. MYCOPHENOLATE [Suspect]
     Active Substance: MYCOPHENOLIC ACID
     Indication: IMMUNOSUPPRESSION
     Dosage: UNK
     Route: 065

REACTIONS (6)
  - Respiratory failure [Unknown]
  - Multiple organ dysfunction syndrome [Fatal]
  - Septic shock [Unknown]
  - Renal failure [Unknown]
  - Toxoplasmosis [Fatal]
  - Cardiac arrest [Unknown]
